FAERS Safety Report 5240122-9 (Version None)
Quarter: 2007Q1

REPORT INFORMATION
  Report Type: 
  Country: None (occurrence: None)
  Receive Date: 20070216
  Receipt Date: 20070207
  Transmission Date: 20070707
  Serious: Yes (Other)
  Sender: FDA-Public Use
  Company Number: US-PFIZER INC-2007010919

PATIENT
  Sex: Male

DRUGS (1)
  1. MEDROL [Suspect]
     Route: 042

REACTIONS (6)
  - ARTHROPATHY [None]
  - JOINT INJURY [None]
  - OVERDOSE [None]
  - PAIN [None]
  - RENAL FAILURE [None]
  - SKIN DISORDER [None]
